FAERS Safety Report 14310561 (Version 5)
Quarter: 2018Q2

REPORT INFORMATION
  Report Type: Spontaneous
  Country: FR (occurrence: FR)
  Receive Date: 20171220
  Receipt Date: 20180621
  Transmission Date: 20180711
  Serious: Yes (Hospitalization, Other)
  Sender: FDA-Public Use
  Company Number: FR-MYLANLABS-2017M1079639

PATIENT
  Age: 89 Year
  Sex: Female
  Weight: 55 kg

DRUGS (12)
  1. ELIQUIS [Interacting]
     Active Substance: APIXABAN
     Indication: CEREBROVASCULAR ACCIDENT PROPHYLAXIS
     Dosage: 2.5 MG, BID
     Route: 048
     Dates: start: 20170117
  2. DIGOXIN. [Suspect]
     Active Substance: DIGOXIN
     Indication: ATRIAL FIBRILLATION
     Dosage: 0.5 MG, UNK
     Route: 042
  3. CORDARONE [Interacting]
     Active Substance: AMIODARONE HYDROCHLORIDE
     Indication: CONDUCTION DISORDER
  4. DIGOXIN. [Interacting]
     Active Substance: DIGOXIN
     Dosage: 0.125 MG, QD, IV DOSE: HALF AMPOULE
     Route: 048
     Dates: start: 20170111, end: 20170126
  5. DIGOXIN. [Suspect]
     Active Substance: DIGOXIN
     Indication: CONDUCTION DISORDER
     Dosage: 0.125 MG, QD,IV DOSE: HALF AMPOULE
     Route: 065
  6. DIGOXIN. [Interacting]
     Active Substance: DIGOXIN
     Indication: CARDIAC FAILURE
     Dosage: 0.13 MG, QD,IV DOSE: HALF AMPOULE
     Route: 048
     Dates: start: 20170111, end: 20170126
  7. CORDARONE [Interacting]
     Active Substance: AMIODARONE HYDROCHLORIDE
     Indication: ATRIAL FIBRILLATION
     Dosage: 100 MG, BID
     Route: 048
     Dates: start: 20000101, end: 20170111
  8. FUROSEMIDE. [Interacting]
     Active Substance: FUROSEMIDE
     Indication: TACHYARRHYTHMIA
  9. DIGOXIN. [Suspect]
     Active Substance: DIGOXIN
     Dosage: 1.75 MG, UNK
     Route: 065
  10. AMIODARONE [Suspect]
     Active Substance: AMIODARONE
     Indication: ATRIAL FIBRILLATION
     Dosage: 100 MG, BID
     Route: 048
     Dates: start: 2000, end: 20170111
  11. DIGOXIN. [Suspect]
     Active Substance: DIGOXIN
     Indication: TACHYARRHYTHMIA
     Dosage: 0.5 ABSENT, UNK, IV DOSE: HALF AMPOULE
     Route: 042
  12. FUROSEMIDE. [Interacting]
     Active Substance: FUROSEMIDE
     Indication: CARDIAC FAILURE
     Dosage: UNK
     Route: 065

REACTIONS (8)
  - Drug level increased [Unknown]
  - Dyspnoea [Unknown]
  - Tachyarrhythmia [Unknown]
  - Drug interaction [Unknown]
  - Orthopnoea [Unknown]
  - Overdose [Recovered/Resolved]
  - Toxicity to various agents [Unknown]
  - Cardiac failure [Unknown]

NARRATIVE: CASE EVENT DATE: 20170124
